FAERS Safety Report 9147365 (Version 2)
Quarter: 2013Q1

REPORT INFORMATION
  Report Type: Spontaneous
  Country: FR (occurrence: None)
  Receive Date: 20130225
  Receipt Date: 20130311
  Transmission Date: 20140127
  Serious: Yes (Death, Other)
  Sender: FDA-Public Use
  Company Number: 2013MPI00072

PATIENT
  Age: 48 Year
  Sex: Male

DRUGS (2)
  1. BRENTUXIMAB VEDOTIN [Suspect]
     Indication: NON-HODGKIN^S LYMPHOMA
     Dosage: Q21D
     Route: 042
     Dates: start: 20121228, end: 20121228
  2. SOLUMEDROL [Concomitant]

REACTIONS (2)
  - Disease progression [None]
  - General physical health deterioration [None]
